FAERS Safety Report 17186723 (Version 2)
Quarter: 2020Q1

REPORT INFORMATION
  Report Type: Spontaneous
  Country: CA (occurrence: CA)
  Receive Date: 20191220
  Receipt Date: 20200129
  Transmission Date: 20200409
  Serious: Yes (Other)
  Sender: FDA-Public Use
  Company Number: CA-SHIRE-CA201943440

PATIENT

DRUGS (3)
  1. GAMMAGARD LIQUID [Suspect]
     Active Substance: HUMAN IMMUNOGLOBULIN G
     Dosage: 70 GRAM
     Route: 042
  2. GAMMAGARD LIQUID [Suspect]
     Active Substance: HUMAN IMMUNOGLOBULIN G
     Indication: NEUROPATHY PERIPHERAL
     Dosage: 30 GRAM
     Route: 042
     Dates: start: 20191004, end: 20191004
  3. GAMMAGARD LIQUID [Suspect]
     Active Substance: HUMAN IMMUNOGLOBULIN G
     Indication: POEMS SYNDROME
     Dosage: 10 GRAM
     Route: 042
     Dates: start: 20191004, end: 20191004

REACTIONS (7)
  - Headache [Recovered/Resolved]
  - Urticaria [Recovered/Resolved]
  - Intentional product use issue [Unknown]
  - Febrile nonhaemolytic transfusion reaction [Recovered/Resolved]
  - Infusion related reaction [Recovered/Resolved]
  - Fixed eruption [Recovered/Resolved]
  - Allergic transfusion reaction [Recovered/Resolved]

NARRATIVE: CASE EVENT DATE: 20191004
